FAERS Safety Report 6312339-3 (Version None)
Quarter: 2009Q3

REPORT INFORMATION
  Report Type: 
  Country: None (occurrence: None)
  Receive Date: 20090817
  Receipt Date: 20090807
  Transmission Date: 20100115
  Serious: Yes (Hospitalization, Other)
  Sender: FDA-Public Use
  Company Number: PHHY2009BR33333

PATIENT
  Sex: Male

DRUGS (14)
  1. DIOVAN [Suspect]
     Dosage: 80 MG, QD
  2. DIOVAN [Suspect]
     Dosage: 0.5 DF (160 MG) QD
  3. SYNTHROID [Concomitant]
     Dosage: 75 UG IN FASTING
  4. EZETROL [Concomitant]
     Dosage: 10 MG IN BREAKFAST
  5. ZETIA [Concomitant]
     Dosage: 10 MG IN BREAKFAST
  6. SERTRALINE HYDROCHLORIDE [Concomitant]
     Dosage: 50MG IN BREAKFAST
  7. CARVEDILOL [Concomitant]
     Dosage: 6/25MG AT BREAKFAST AND DINNER
  8. ALLOPURINOL [Concomitant]
     Dosage: 300MG AT BREAKFAST
  9. ALDACTONE [Concomitant]
     Dosage: 25MG HALF TABLET AT BREAKFAST
  10. GALVUS [Concomitant]
     Dosage: 50/850MG COMBIPACK AT BREAKFAST AND DINNER
     Dates: start: 20090601
  11. LASIX [Concomitant]
     Dosage: 1 DF, QW3
  12. AAS [Concomitant]
     Dosage: AT LUNCH
  13. IRON POLYMALTOSE [Concomitant]
     Dosage: AT LUNCH
  14. LIPITOR [Concomitant]
     Dosage: 40MG AT DINNER

REACTIONS (4)
  - CARDIAC DISORDER [None]
  - DRUG DISPENSING ERROR [None]
  - FEELING ABNORMAL [None]
  - HEART VALVE OPERATION [None]
